FAERS Safety Report 10196444 (Version 1)
Quarter: 2014Q2

REPORT INFORMATION
  Report Type: Spontaneous
  Country: US (occurrence: US)
  Receive Date: 20140527
  Receipt Date: 20140527
  Transmission Date: 20141212
  Serious: Yes (Hospitalization)
  Sender: FDA-Public Use
  Company Number: US-BAYER-2014-076937

PATIENT
  Age: 18 Year
  Sex: Female
  Weight: 58 kg

DRUGS (5)
  1. YAZ [Suspect]
     Indication: OVARIAN CYST
  2. GIANVI [Suspect]
  3. FLUVIRIN [Concomitant]
  4. FLUVIRIN [Concomitant]
  5. IBUPROFEN [Concomitant]

REACTIONS (1)
  - Pulmonary embolism [Recovered/Resolved]
